FAERS Safety Report 5638086-9 (Version None)
Quarter: 2008Q1

REPORT INFORMATION
  Report Type: 
  Country: None (occurrence: None)
  Receive Date: 20080222
  Receipt Date: 20080222
  Transmission Date: 20080703
  Serious: Yes (Other)
  Sender: FDA-Public Use
  Company Number: None

PATIENT
  Age: 52 Year
  Weight: 68.0396 kg

DRUGS (1)
  1. TRAMADOL HCL [Suspect]
     Indication: MYOFASCIAL PAIN SYNDROME
     Dosage: 400 MG/DAY  100MG  4/DAY  PO (DURATION: ABOUT 5+ YEARS)
     Route: 048

REACTIONS (11)
  - ABDOMINAL PAIN UPPER [None]
  - ASTHENIA [None]
  - BACK PAIN [None]
  - DRUG WITHDRAWAL SYNDROME [None]
  - INCORRECT DOSE ADMINISTERED [None]
  - LIBIDO DECREASED [None]
  - PAIN [None]
  - PAIN IN EXTREMITY [None]
  - REBOUND EFFECT [None]
  - RESTLESS LEGS SYNDROME [None]
  - SLEEP DISORDER [None]
